FAERS Safety Report 24058469 (Version 4)
Quarter: 2024Q3

REPORT INFORMATION
  Report Type: Spontaneous
  Country: BR (occurrence: BR)
  Receive Date: 20240708
  Receipt Date: 20240724
  Transmission Date: 20241016
  Serious: Yes (Hospitalization)
  Sender: BOEHRINGER INGELHEIM
  Company Number: BR-BoehringerIngelheim-2024-BI-037922

PATIENT
  Age: 61 Year
  Sex: Male
  Weight: 55 kg

DRUGS (4)
  1. OLODATEROL HYDROCHLORIDE\TIOTROPIUM BROMIDE MONOHYDRATE [Suspect]
     Active Substance: OLODATEROL HYDROCHLORIDE\TIOTROPIUM BROMIDE MONOHYDRATE
     Indication: Chronic obstructive pulmonary disease
     Dosage: FORM STRENGTH: 2.5 MICROGRAMS + 2.5 MICROGRAMS.?2 PUFFS IN THE MORNING.
     Route: 048
     Dates: start: 202401
  2. OLODATEROL HYDROCHLORIDE\TIOTROPIUM BROMIDE MONOHYDRATE [Suspect]
     Active Substance: OLODATEROL HYDROCHLORIDE\TIOTROPIUM BROMIDE MONOHYDRATE
     Dosage: FORM STRENGTH: 2.5 MICROGRAMS + 2.5 MICROGRAMS. ?HE ALTERNATED THE USE OF THE 2 MEDICATIONS (ON THE
     Route: 055
     Dates: start: 202401, end: 202401
  3. BECLOMETHASONE DIPROPIONATE [Concomitant]
     Active Substance: BECLOMETHASONE DIPROPIONATE
     Indication: Product used for unknown indication
     Dosage: 1 PUFF
     Dates: start: 2022, end: 202401
  4. BECLOMETHASONE DIPROPIONATE [Concomitant]
     Active Substance: BECLOMETHASONE DIPROPIONATE
     Dosage: HE ALTERNATED THE USE OF THE 2 MEDICATIONS (ON THE ADVICE OF THE PHYSICIAN): ON 1 DAY HE USED CLENIL
     Dates: start: 202401, end: 202401

REACTIONS (2)
  - Pneumonitis [Recovered/Resolved]
  - Pneumonitis [Not Recovered/Not Resolved]

NARRATIVE: CASE EVENT DATE: 20240608
